FAERS Safety Report 6471565-3 (Version None)
Quarter: 2009Q4

REPORT INFORMATION
  Report Type: 
  Country: None (occurrence: None)
  Receive Date: 20091203
  Receipt Date: 20091123
  Transmission Date: 20100525
  Serious: Yes (Death, Hospitalization)
  Sender: FDA-Public Use
  Company Number: NZ-TEVA-215957ISR

PATIENT
  Age: 47 Year
  Sex: Male

DRUGS (3)
  1. ALBUTEROL [Suspect]
     Indication: ASTHMA
  2. ALBUTEROL SULFATE AUTOHALER [Suspect]
     Indication: ASTHMA
  3. FLUTICASONE PROPIONATE [Concomitant]

REACTIONS (2)
  - CARDIAC FAILURE [None]
  - CONGESTIVE CARDIOMYOPATHY [None]
